FAERS Safety Report 9197588 (Version 2)
Quarter: 2013Q4

REPORT INFORMATION
  Report Type: Spontaneous
  Country: DK (occurrence: GH)
  Receive Date: 20130328
  Receipt Date: 20131127
  Transmission Date: 20140711
  Serious: Yes (Other)
  Sender: FDA-Public Use
  Company Number: DK-GLAXOSMITHKLINE-B0878294A

PATIENT
  Age: 26 Year
  Sex: Female
  Weight: 75 kg

DRUGS (3)
  1. MALARONE [Suspect]
     Indication: MALARIA PROPHYLAXIS
     Dosage: 1TAB PER DAY
     Route: 065
     Dates: start: 20130124, end: 20130421
  2. ETHINYLESTRADIOL + LEVONORGESTREL [Concomitant]
  3. OMEPRAZOLE [Concomitant]

REACTIONS (2)
  - Malaria [Recovered/Resolved]
  - Drug ineffective [Recovered/Resolved]
